FAERS Safety Report 9337990 (Version 1)
Quarter: 2013Q2

REPORT INFORMATION
  Report Type: Spontaneous
  Country: AU (occurrence: AU)
  Receive Date: 20130609
  Receipt Date: 20130609
  Transmission Date: 20140414
  Serious: Yes (Hospitalization, Disabling)
  Sender: FDA-Public Use
  Company Number: AU-MYLANLABS-2013S1011709

PATIENT
  Age: 4 Year
  Sex: Female

DRUGS (1)
  1. VENLAFAXINE [Suspect]
     Route: 048

REACTIONS (2)
  - Dystonia [Recovered/Resolved]
  - Accidental exposure to product by child [Recovered/Resolved]
